FAERS Safety Report 7015533-1 (Version None)
Quarter: 2010Q3

REPORT INFORMATION
  Report Type: 
  Country: None (occurrence: None)
  Receive Date: 20100927
  Receipt Date: 20100914
  Transmission Date: 20110219
  Serious: Yes (Hospitalization)
  Sender: FDA-Public Use
  Company Number: CH-SOLVAY-00210005672

PATIENT
  Age: 80 Year
  Sex: Female
  Weight: 61 kg

DRUGS (3)
  1. HYGROTON [Suspect]
     Indication: HYPERTENSION
     Dosage: DAILY DOSE:  UNKNOWN, HALF TABLET TWICE A WEEK
     Route: 048
  2. PONSTAN [Interacting]
     Indication: TOOTH DISORDER
     Dosage: DAILY DOSE: 2000 MILLIGRAM(S)
     Route: 048
     Dates: start: 20100709, end: 20100701
  3. COVERSUM NOS (PERINDOPRIL ERB OR ARG NOS) [Interacting]
     Indication: HYPERTENSION
     Dosage: DAILY DOSE: 1 DOSAGE FORM
     Route: 065
     Dates: end: 20100701

REACTIONS (3)
  - DRUG INTERACTION [None]
  - HYPONATRAEMIA [None]
  - RENAL FAILURE ACUTE [None]
